FAERS Safety Report 6360749-0 (Version None)
Quarter: 2009Q3

REPORT INFORMATION
  Report Type: 
  Country: None (occurrence: None)
  Receive Date: 20090918
  Receipt Date: 20090914
  Transmission Date: 20100115
  Serious: Yes (Death, Other)
  Sender: FDA-Public Use
  Company Number: JP-JNJFOC-20090809113

PATIENT
  Sex: Female
  Weight: 48 kg

DRUGS (18)
  1. DOXORUBICIN HCL [Suspect]
     Dosage: CYCLE 3
     Route: 042
  2. DOXORUBICIN HCL [Suspect]
     Dosage: CYCLE 2
     Route: 042
  3. DOXORUBICIN HCL [Suspect]
     Indication: OVARIAN CANCER RECURRENT
     Dosage: CYCLE 1
     Route: 042
  4. FAMOTIDINE [Concomitant]
     Indication: PROPHYLAXIS
     Route: 048
  5. URSO 250 [Concomitant]
     Indication: PROPHYLAXIS
     Route: 048
  6. SODIUM BICARBONATE IN PLASTIC CONTAINER [Concomitant]
     Indication: PROPHYLAXIS
     Route: 048
  7. NOVAMIN [Concomitant]
     Route: 048
  8. LOPEMIN [Concomitant]
     Route: 048
  9. BIFIDOBACTERIUM [Concomitant]
     Route: 048
  10. METOCLOPRAMIDE [Concomitant]
     Route: 048
  11. WARFARIN POTASSIUM [Concomitant]
     Route: 048
  12. KETOPROFEN [Concomitant]
     Route: 061
  13. LOXOPROFEN SODIUM [Concomitant]
     Route: 048
  14. TEPRENONE [Concomitant]
     Route: 048
  15. LANSOPRAZOLE [Concomitant]
     Indication: PROPHYLAXIS
     Route: 048
  16. MAGNESIUM OXIDE [Concomitant]
     Route: 048
  17. CALCIUM POLYSTYRENE SULFONATE [Concomitant]
     Route: 048
  18. AZUNOL [Concomitant]
     Route: 049

REACTIONS (3)
  - GASTROINTESTINAL PERFORATION [None]
  - NEUTROPENIA [None]
  - OVARIAN CANCER [None]
